FAERS Safety Report 14860962 (Version 1)
Quarter: 2018Q2

REPORT INFORMATION
  Report Type: Spontaneous
  Country: CA (occurrence: CA)
  Receive Date: 20180508
  Receipt Date: 20180508
  Transmission Date: 20180711
  Serious: Yes (Hospitalization)
  Sender: FDA-Public Use
  Company Number: CA-BAYER-2018-086797

PATIENT
  Age: 63 Year
  Sex: Female
  Weight: 56.69 kg

DRUGS (2)
  1. ULTRAVIST [Suspect]
     Active Substance: IOPROMIDE
     Indication: COMPUTERISED TOMOGRAM ABDOMEN
  2. ULTRAVIST [Suspect]
     Active Substance: IOPROMIDE
     Indication: COMPUTERISED TOMOGRAM PELVIS
     Dosage: UNK UNK, ONCE
     Route: 042

REACTIONS (3)
  - Oropharyngeal pain [Recovering/Resolving]
  - Upper respiratory tract congestion [Recovering/Resolving]
  - Dysphonia [Recovering/Resolving]
